APPROVED DRUG PRODUCT: OLMESARTAN MEDOXOMIL
Active Ingredient: OLMESARTAN MEDOXOMIL
Strength: 40MG
Dosage Form/Route: TABLET;ORAL
Application: A211049 | Product #003 | TE Code: AB
Applicant: SUNSHINE LAKE PHARMA CO LTD
Approved: Feb 22, 2019 | RLD: No | RS: No | Type: RX